FAERS Safety Report 23533376 (Version 1)
Quarter: 2024Q1

REPORT INFORMATION
  Report Type: Report from Study
  Country: US (occurrence: US)
  Receive Date: 20240216
  Receipt Date: 20240216
  Transmission Date: 20240409
  Serious: Yes (Hospitalization, Other)
  Sender: FDA-Public Use
  Company Number: US-ABBVIE-5637862

PATIENT
  Sex: Male

DRUGS (1)
  1. SKYRIZI [Suspect]
     Active Substance: RISANKIZUMAB-RZAA
     Indication: Crohn^s disease
     Route: 058

REACTIONS (12)
  - Large intestine infection [Unknown]
  - Vascular procedure complication [Unknown]
  - Gastrointestinal infection [Unknown]
  - Colitis [Unknown]
  - Gastrointestinal tract irritation [Unknown]
  - Colon cancer [Unknown]
  - Unevaluable event [Unknown]
  - Urinary tract infection [Unknown]
  - Diarrhoea [Unknown]
  - Surgery [Unknown]
  - Unevaluable event [Unknown]
  - Gastrointestinal pain [Unknown]
